FAERS Safety Report 10498826 (Version 6)
Quarter: 2015Q1

REPORT INFORMATION
  Report Type: Spontaneous
  Country: US (occurrence: US)
  Receive Date: 20141006
  Receipt Date: 20150115
  Transmission Date: 20150720
  Serious: No
  Sender: FDA-Public Use
  Company Number: US-009507513-1410USA001603

PATIENT
  Sex: Female
  Weight: 172.34 kg

DRUGS (1)
  1. NEXPLANON [Suspect]
     Active Substance: ETONOGESTREL
     Indication: CONTRACEPTION
     Dosage: 68MG/ONE ROD, INSERTED EVERY THREE YEARS
     Route: 059

REACTIONS (2)
  - Unintended pregnancy [Unknown]
  - Obesity [Unknown]

NARRATIVE: CASE EVENT DATE: 20140501
